APPROVED DRUG PRODUCT: CHLORZOXAZONE
Active Ingredient: CHLORZOXAZONE
Strength: 250MG
Dosage Form/Route: TABLET;ORAL
Application: A086901 | Product #001
Applicant: WATSON LABORATORIES INC
Approved: Approved Prior to Jan 1, 1982 | RLD: No | RS: No | Type: DISCN